FAERS Safety Report 4414122-2 (Version None)
Quarter: 2004Q3

REPORT INFORMATION
  Report Type: 
  Country: None (occurrence: None)
  Receive Date: 20040803
  Receipt Date: 20040723
  Transmission Date: 20050211
  Serious: Yes (Hospitalization)
  Sender: FDA-Public Use
  Company Number: CH-BRISTOL-MYERS SQUIBB COMPANY-12653119

PATIENT
  Age: 41 Year
  Sex: Male

DRUGS (4)
  1. EFAVIRENZ CAPS [Suspect]
     Indication: HIV INFECTION
     Route: 048
  2. TRIZIVIR [Suspect]
     Indication: HIV INFECTION
     Route: 048
  3. TENORMIN [Suspect]
     Indication: HYPERTENSION
     Route: 048
  4. METHADONE HCL [Concomitant]

REACTIONS (2)
  - COMA [None]
  - DIABETES MELLITUS [None]
